FAERS Safety Report 10331788 (Version 1)
Quarter: 2014Q3

REPORT INFORMATION
  Report Type: Spontaneous
  Country: IN (occurrence: IN)
  Receive Date: 20140722
  Receipt Date: 20140722
  Transmission Date: 20150326
  Serious: Yes (Other)
  Sender: FDA-Public Use
  Company Number: PHHY2014IN088699

PATIENT

DRUGS (4)
  1. BUPIVACAINE [Suspect]
     Active Substance: BUPIVACAINE
     Route: 064
  2. CARVEDILOL. [Suspect]
     Active Substance: CARVEDILOL
     Route: 064
  3. LASIX [Suspect]
     Active Substance: FUROSEMIDE
     Route: 064
  4. FENTANYL. [Suspect]
     Active Substance: FENTANYL
     Route: 064

REACTIONS (2)
  - Foetal exposure during pregnancy [Unknown]
  - Premature baby [Unknown]
